FAERS Safety Report 7812768-2 (Version None)
Quarter: 2011Q4

REPORT INFORMATION
  Report Type: 
  Country: None (occurrence: None)
  Receive Date: 20111013
  Receipt Date: 20111006
  Transmission Date: 20120403
  Serious: Yes (Other)
  Sender: FDA-Public Use
  Company Number: US-NOVOPROD-336717

PATIENT

DRUGS (4)
  1. VICTOZA [Suspect]
     Indication: TYPE 2 DIABETES MELLITUS
     Dosage: UNK UNK, QD
     Route: 058
     Dates: start: 20110601
  2. ACTOS [Concomitant]
     Indication: TYPE 2 DIABETES MELLITUS
  3. VICTOZA [Suspect]
     Dosage: 1.2 MG, QD
     Dates: end: 20110930
  4. METFORMIN HYDROCHLORIDE [Concomitant]
     Indication: TYPE 2 DIABETES MELLITUS
     Route: 048

REACTIONS (2)
  - DEHYDRATION [None]
  - PANCREATITIS [None]
